FAERS Safety Report 9943670 (Version 1)
Quarter: 2014Q1

REPORT INFORMATION
  Report Type: Spontaneous
  Country: PR (occurrence: PR)
  Receive Date: 20140303
  Receipt Date: 20140303
  Transmission Date: 20141002
  Serious: No
  Sender: FDA-Public Use
  Company Number: PR-ABBVIE-13P-131-1052371-00

PATIENT
  Sex: 0

DRUGS (5)
  1. HUMIRA [Suspect]
     Indication: RHEUMATOID ARTHRITIS
     Route: 058
     Dates: start: 2009
  2. BENICAR [Concomitant]
     Indication: HYPERTENSION
     Dosage: 12.5/20MG QD
     Route: 048
  3. ULTRAM [Concomitant]
     Indication: RHEUMATOID ARTHRITIS
     Route: 048
  4. CATAFLAM [Concomitant]
     Indication: RHEUMATOID ARTHRITIS
     Route: 048
  5. MEDROL [Concomitant]
     Route: 048

REACTIONS (1)
  - Nasopharyngitis [Unknown]
